FAERS Safety Report 14313082 (Version 3)
Quarter: 2018Q1

REPORT INFORMATION
  Report Type: Spontaneous
  Country: US (occurrence: US)
  Receive Date: 20171221
  Receipt Date: 20180228
  Transmission Date: 20180509
  Serious: Yes (Life-Threatening, Hospitalization)
  Sender: FDA-Public Use
  Company Number: US-VALIDUS PHARMACEUTICALS LLC-US-2017VAL001677

PATIENT
  Age: 38 Year
  Sex: Female
  Weight: 75 kg

DRUGS (4)
  1. DIAMOX                             /00016901/ [Suspect]
     Active Substance: ACETAZOLAMIDE
     Indication: OBESITY
     Dosage: UNK
  2. PHENTERMINE. [Suspect]
     Active Substance: PHENTERMINE
     Indication: OBESITY
     Dosage: UNK
  3. LIRAGLUTIDE [Suspect]
     Active Substance: LIRAGLUTIDE
     Indication: OBESITY
     Dosage: UNK, WITHHELD INFORMATION
     Dates: start: 20170313, end: 20170324
  4. LASIX [Suspect]
     Active Substance: FUROSEMIDE
     Indication: OBESITY
     Dosage: UNK

REACTIONS (9)
  - Ventricular fibrillation [Unknown]
  - Seizure [Unknown]
  - Product prescribing issue [Unknown]
  - Torsade de pointes [Unknown]
  - Off label use [Unknown]
  - Atrial fibrillation [Unknown]
  - Hypoxic-ischaemic encephalopathy [Unknown]
  - Hypokalaemia [Unknown]
  - Cardiac arrest [Recovered/Resolved]

NARRATIVE: CASE EVENT DATE: 20171017
